FAERS Safety Report 13608924 (Version 2)
Quarter: 2017Q2

REPORT INFORMATION
  Report Type: Report from Study
  Country: US (occurrence: US)
  Receive Date: 20170602
  Receipt Date: 20170620
  Transmission Date: 20170830
  Serious: Yes (Hospitalization, Other)
  Sender: FDA-Public Use
  Company Number: US-BIOGEN-2017BI00408416

PATIENT
  Age: 42 Year
  Sex: Female

DRUGS (1)
  1. ZINBRYTA [Suspect]
     Active Substance: DACLIZUMAB
     Indication: MULTIPLE SCLEROSIS
     Route: 058
     Dates: start: 20170203, end: 20170401

REACTIONS (5)
  - Urticaria [Not Recovered/Not Resolved]
  - Drug eruption [Not Recovered/Not Resolved]
  - Swelling face [Not Recovered/Not Resolved]
  - Eyelid oedema [Not Recovered/Not Resolved]
  - Mouth swelling [Unknown]

NARRATIVE: CASE EVENT DATE: 201704
